FAERS Safety Report 19525048 (Version 2)
Quarter: 2021Q3

REPORT INFORMATION
  Report Type: Report from Study
  Country: JP (occurrence: JP)
  Receive Date: 20210712
  Receipt Date: 20210819
  Transmission Date: 20211014
  Serious: Yes (Disabling, Other)
  Sender: FDA-Public Use
  Company Number: NVSJ2021JP010027

PATIENT
  Age: 87 Year
  Sex: Female

DRUGS (26)
  1. CONCENTRATED RED CELLS [Concomitant]
     Active Substance: HUMAN RED BLOOD CELL
     Dosage: 800 ML,2 TIMES A MONTH
     Route: 065
  2. PLATELETS [Concomitant]
     Active Substance: HUMAN PLATELET, ALLOGENIC
     Dosage: 800 ML
     Route: 065
  3. PLATELETS [Concomitant]
     Active Substance: HUMAN PLATELET, ALLOGENIC
     Dosage: 800 ML
     Route: 065
  4. REVOLADE TAB [Suspect]
     Active Substance: ELTROMBOPAG OLAMINE
     Dosage: 50 MG
     Route: 048
     Dates: start: 20190718, end: 20190724
  5. CYCLOSPORINE. [Suspect]
     Active Substance: CYCLOSPORINE
     Dosage: 40 MG
     Route: 048
     Dates: start: 20191024, end: 20191211
  6. PLATELETS [Concomitant]
     Active Substance: HUMAN PLATELET, ALLOGENIC
     Dosage: 800 ML
     Route: 065
  7. CYCLOSPORINE. [Suspect]
     Active Substance: CYCLOSPORINE
     Dosage: 80 MG
     Route: 048
     Dates: start: 20190718, end: 20190724
  8. CYCLOSPORINE. [Suspect]
     Active Substance: CYCLOSPORINE
     Dosage: UNK
     Route: 065
  9. CONCENTRATED RED CELLS [Concomitant]
     Active Substance: HUMAN RED BLOOD CELL
     Indication: APLASTIC ANAEMIA
     Dosage: 400 ML, QMO
     Route: 065
  10. CONCENTRATED RED CELLS [Concomitant]
     Active Substance: HUMAN RED BLOOD CELL
     Dosage: 800 ML,2 TIMES A MONTH
     Route: 065
  11. CONCENTRATED RED CELLS [Concomitant]
     Active Substance: HUMAN RED BLOOD CELL
     Dosage: 800 ML,2 TIMES A MONTH
     Route: 065
  12. CONCENTRATED RED CELLS [Concomitant]
     Active Substance: HUMAN RED BLOOD CELL
     Dosage: 1600 ML
     Route: 065
  13. CYCLOSPORINE. [Suspect]
     Active Substance: CYCLOSPORINE
     Dosage: 60 MG
     Route: 048
     Dates: start: 20190725, end: 20190801
  14. CYCLOSPORINE. [Suspect]
     Active Substance: CYCLOSPORINE
     Dosage: 60 MG
     Route: 048
     Dates: start: 20191212
  15. PLATELETS [Concomitant]
     Active Substance: HUMAN PLATELET, ALLOGENIC
     Dosage: 800 ML
     Route: 065
  16. PLATELETS [Concomitant]
     Active Substance: HUMAN PLATELET, ALLOGENIC
     Dosage: 1000 ML
     Route: 065
  17. REVOLADE TAB [Suspect]
     Active Substance: ELTROMBOPAG OLAMINE
     Dosage: 75 MG
     Route: 048
     Dates: start: 20190725, end: 20190814
  18. PLATELETS [Concomitant]
     Active Substance: HUMAN PLATELET, ALLOGENIC
     Dosage: 800 ML
     Route: 065
  19. REVOLADE TAB [Suspect]
     Active Substance: ELTROMBOPAG OLAMINE
     Indication: APLASTIC ANAEMIA
     Dosage: 25 MG
     Route: 048
     Dates: start: 20190704, end: 20190717
  20. REVOLADE TAB [Suspect]
     Active Substance: ELTROMBOPAG OLAMINE
     Dosage: 100 MG
     Route: 048
     Dates: start: 20190815, end: 20200123
  21. CYCLOSPORINE. [Suspect]
     Active Substance: CYCLOSPORINE
     Indication: APLASTIC ANAEMIA
     Dosage: 100 MG
     Route: 048
     Dates: start: 20190704, end: 20190717
  22. CONCENTRATED RED CELLS [Concomitant]
     Active Substance: HUMAN RED BLOOD CELL
     Dosage: 1600 ML
     Route: 065
  23. CYCLOSPORINE. [Suspect]
     Active Substance: CYCLOSPORINE
     Dosage: 80 MG
     Route: 048
     Dates: start: 20190912, end: 20191023
  24. CONCENTRATED RED CELLS [Concomitant]
     Active Substance: HUMAN RED BLOOD CELL
     Dosage: 800 ML,2 TIMES A MONTH
     Route: 065
  25. PLATELETS [Concomitant]
     Active Substance: HUMAN PLATELET, ALLOGENIC
     Indication: APLASTIC ANAEMIA
     Dosage: 200 ML, QMO
     Route: 065
  26. CONCENTRATED RED CELLS [Concomitant]
     Active Substance: HUMAN RED BLOOD CELL
     Dosage: 1200 ML,3 TIMES A MONTH
     Route: 065

REACTIONS (5)
  - Gingival bleeding [Recovered/Resolved]
  - Infection [Unknown]
  - Neutrophil count decreased [Unknown]
  - White blood cell count decreased [Unknown]
  - Renal impairment [Not Recovered/Not Resolved]

NARRATIVE: CASE EVENT DATE: 20190718
